FAERS Safety Report 7922358 (Version 3)
Quarter: 2013Q4

REPORT INFORMATION
  Report Type: Spontaneous
  Country: US (occurrence: US)
  Receive Date: 20110429
  Receipt Date: 20131220
  Transmission Date: 20140711
  Serious: No
  Sender: FDA-Public Use
  Company Number: US-ASTRAZENECA-2011SE05151

PATIENT
  Age: 66 Year
  Sex: Female
  Weight: 76.2 kg

DRUGS (5)
  1. NEXIUM [Suspect]
     Indication: GASTROOESOPHAGEAL REFLUX DISEASE
     Route: 048
  2. NEXIUM [Suspect]
     Indication: GASTROOESOPHAGEAL REFLUX DISEASE
     Route: 048
  3. PRILOSEC [Suspect]
     Route: 048
  4. HYDROCHLOROTHIAZIDE [Suspect]
     Indication: DIURETIC THERAPY
     Route: 065
  5. BENAZAPRIL [Concomitant]
     Indication: BLOOD PRESSURE ABNORMAL

REACTIONS (4)
  - Gastrooesophageal reflux disease [Unknown]
  - Throat irritation [Unknown]
  - Intentional drug misuse [Unknown]
  - Drug ineffective [Unknown]
